FAERS Safety Report 7494841-4 (Version None)
Quarter: 2011Q2

REPORT INFORMATION
  Report Type: 
  Country: None (occurrence: None)
  Receive Date: 20110520
  Receipt Date: 20110516
  Transmission Date: 20111010
  Serious: Yes (Hospitalization)
  Sender: FDA-Public Use
  Company Number: B0720685A

PATIENT
  Age: 19 Year
  Sex: Female
  Weight: 48 kg

DRUGS (1)
  1. CEFUROXIME AXETIL [Suspect]
     Route: 048
     Dates: start: 20110309, end: 20110314

REACTIONS (2)
  - FACE OEDEMA [None]
  - URTICARIA [None]
